FAERS Safety Report 16674573 (Version 1)
Quarter: 2019Q3

REPORT INFORMATION
  Report Type: Spontaneous
  Country: US (occurrence: US)
  Receive Date: 20190806
  Receipt Date: 20190806
  Transmission Date: 20191004
  Serious: Yes (Other)
  Sender: FDA-Public Use
  Company Number: US-TEVA-2019-US-1087197

PATIENT
  Age: 6 Decade
  Sex: Female

DRUGS (8)
  1. CARBOPLATIN. [Suspect]
     Active Substance: CARBOPLATIN
     Indication: METAPLASTIC BREAST CARCINOMA
     Dosage: RECEIVED 14 DOSES; AREA UNDER THE CURVE 2.25
     Route: 065
     Dates: start: 200402, end: 200405
  2. DOXORUBICIN LIPOSOME [Suspect]
     Active Substance: DOXORUBICIN
     Indication: METAPLASTIC BREAST CARCINOMA
     Dosage: RECEIVED 8 DOSES
     Route: 065
     Dates: start: 200406, end: 200407
  3. GEMCITABINE. [Suspect]
     Active Substance: GEMCITABINE
     Indication: METAPLASTIC BREAST CARCINOMA
     Dosage: 600-750 MG/M2; RECEIVED 6 DOSES
     Route: 050
     Dates: start: 200408, end: 200410
  4. ZOLEDRONIC ACID [Concomitant]
     Active Substance: ZOLEDRONIC ACID
     Indication: PROPHYLAXIS
     Route: 050
  5. CISPLATIN. [Suspect]
     Active Substance: CISPLATIN
     Indication: METAPLASTIC BREAST CARCINOMA
     Dosage: 15-20 MG/M2/WEEK RECEIVED 6 DOSES
     Route: 050
     Dates: start: 200408, end: 200410
  6. PACLITAXEL. [Suspect]
     Active Substance: PACLITAXEL
     Indication: METAPLASTIC BREAST CARCINOMA
     Dosage: RECEIVED 14 DOSES
     Route: 065
     Dates: start: 200402, end: 200405
  7. VINORELBINE [Suspect]
     Active Substance: VINORELBINE TARTRATE
     Indication: METAPLASTIC BREAST CARCINOMA
     Dosage: COMPLETED 12 DOSES OF CHEMOTHERAPY
     Route: 065
     Dates: start: 200412, end: 200502
  8. IMIQUIMOD. [Suspect]
     Active Substance: IMIQUIMOD
     Indication: METAPLASTIC BREAST CARCINOMA
     Route: 061
     Dates: start: 200506

REACTIONS (8)
  - Neutropenia [Unknown]
  - Pruritus [Recovered/Resolved]
  - Erythema [Recovered/Resolved]
  - Drug ineffective [Unknown]
  - Application site erosion [Recovered/Resolved]
  - Palmar-plantar erythrodysaesthesia syndrome [Recovered/Resolved]
  - Skin ulcer [Recovered/Resolved]
  - Thrombocytopenia [Unknown]

NARRATIVE: CASE EVENT DATE: 2004
